FAERS Safety Report 25116267 (Version 1)
Quarter: 2025Q1

REPORT INFORMATION
  Report Type: Report from Study
  Country: AE (occurrence: AE)
  Receive Date: 20250325
  Receipt Date: 20250325
  Transmission Date: 20250409
  Serious: Yes (Other)
  Sender: ROCHE
  Company Number: AE-ROCHE-10000233179

PATIENT
  Age: 70 Year
  Sex: Male

DRUGS (1)
  1. ALECENSA [Suspect]
     Active Substance: ALECTINIB HYDROCHLORIDE
     Indication: Product used for unknown indication
     Route: 065
     Dates: start: 201801

REACTIONS (9)
  - Wheelchair user [Unknown]
  - Neoplasm [Unknown]
  - Intracranial calcification [Unknown]
  - Metastases to bone [Unknown]
  - Pulmonary mass [Unknown]
  - Pleural effusion [Unknown]
  - Cough [Unknown]
  - Gait disturbance [Unknown]
  - Peripheral swelling [Unknown]

NARRATIVE: CASE EVENT DATE: 20190612
